FAERS Safety Report 9088999 (Version 1)
Quarter: 2013Q1

REPORT INFORMATION
  Report Type: Report from Study
  Country: US (occurrence: US)
  Receive Date: 20130201
  Receipt Date: 20130201
  Transmission Date: 20140127
  Serious: No
  Sender: FDA-Public Use
  Company Number: US-ABBOTT-12P-163-1024127-00

PATIENT
  Age: 29 Year
  Sex: Female

DRUGS (4)
  1. HUMIRA [Suspect]
     Indication: PSORIASIS
     Dates: start: 20121201, end: 20121201
  2. HUMIRA [Suspect]
     Dates: start: 20121208
  3. UNKNOWN HEADACHE MEDICATION (PRESCRIPTION STRENGTH FOR IBUPROFEN) [Concomitant]
     Indication: HEADACHE
  4. TACLONEX [Concomitant]
     Indication: PSORIASIS
     Dosage: TO AFFECTED AREAS IN EVENINGS

REACTIONS (9)
  - Skin fissures [Not Recovered/Not Resolved]
  - Injection site pain [Not Recovered/Not Resolved]
  - Injection site pain [Not Recovered/Not Resolved]
  - Psoriasis [Not Recovered/Not Resolved]
  - Skin exfoliation [Not Recovered/Not Resolved]
  - Erythema [Not Recovered/Not Resolved]
  - Skin exfoliation [Not Recovered/Not Resolved]
  - Psoriasis [Not Recovered/Not Resolved]
  - Psoriasis [Not Recovered/Not Resolved]
